FAERS Safety Report 5179791-0 (Version None)
Quarter: 2006Q4

REPORT INFORMATION
  Report Type: 
  Country: None (occurrence: None)
  Receive Date: 20061219
  Receipt Date: 20061213
  Transmission Date: 20070319
  Serious: Yes (Other)
  Sender: FDA-Public Use
  Company Number: GB-MERCK-0612GBR00074

PATIENT
  Age: 68 Year
  Sex: Male
  Weight: 70 kg

DRUGS (6)
  1. SIMVASTATIN [Suspect]
     Route: 048
     Dates: start: 20061025
  2. SIMVASTATIN [Suspect]
     Route: 048
  3.  [Concomitant]
     Route: 065
     Dates: start: 20060222
  4. INDAPAMIDE [Concomitant]
     Route: 048
     Dates: start: 20060302
  5. LISINOPRIL [Concomitant]
     Route: 048
     Dates: start: 20060321
  6. SILDENAFIL CITRATE [Concomitant]
     Route: 048
     Dates: start: 20061125

REACTIONS (2)
  - DRY MOUTH [None]
  - DYSGEUSIA [None]
